FAERS Safety Report 10815359 (Version 2)
Quarter: 2021Q4

REPORT INFORMATION
  Report Type: Spontaneous
  Country: AU (occurrence: AU)
  Receive Date: 20150218
  Receipt Date: 20211223
  Transmission Date: 20220303
  Serious: Yes (Life-Threatening, Other)
  Sender: FDA-Public Use
  Company Number: AU-MYLANLABS-2015M1004751

PATIENT
  Age: 2 Year
  Sex: Male

DRUGS (1)
  1. EPIPEN JR [Suspect]
     Active Substance: EPINEPHRINE
     Indication: Anaphylactic reaction
     Dosage: 1 DOSAGE FORM, ONCE

REACTIONS (5)
  - Therapeutic response delayed [Recovered/Resolved]
  - Wound [Unknown]
  - Skin wound [Unknown]
  - Needle issue [Unknown]
  - Anaphylactic reaction [Unknown]
